FAERS Safety Report 19866761 (Version 2)
Quarter: 2021Q4

REPORT INFORMATION
  Report Type: Spontaneous
  Country: PL (occurrence: PL)
  Receive Date: 20210921
  Receipt Date: 20211007
  Transmission Date: 20220303
  Serious: Yes (Hospitalization)
  Sender: FDA-Public Use
  Company Number: NVSC2021PL211495

PATIENT
  Age: 12 Year
  Sex: Female

DRUGS (2)
  1. CARBAMAZEPINE [Suspect]
     Active Substance: CARBAMAZEPINE
     Indication: Product used for unknown indication
     Dosage: 30 DF, ONCE/SINGLE (THE PATIENT HAD INGESTED ABOUT THIRTY TABLETS OF CARBAMAZEPINE)
     Route: 048
  2. ALCOHOL [Suspect]
     Active Substance: ALCOHOL
     Indication: Product used for unknown indication
     Dosage: UNK, ONCE/SINGLE
     Route: 065

REACTIONS (2)
  - Poisoning [Unknown]
  - Intentional overdose [Unknown]
